FAERS Safety Report 12296609 (Version 1)
Quarter: 2016Q2

REPORT INFORMATION
  Report Type: Report from Study
  Country: AR (occurrence: AR)
  Receive Date: 20160422
  Receipt Date: 20160422
  Transmission Date: 20160815
  Serious: Yes (Other)
  Sender: FDA-Public Use
  Company Number: AR-ABBVIE-14K-007-1249932-00

PATIENT
  Age: 51 Year
  Sex: Female

DRUGS (2)
  1. HUMIRA [Suspect]
     Active Substance: ADALIMUMAB
     Indication: PSORIATIC ARTHROPATHY
     Route: 058
     Dates: start: 20101122, end: 201404
  2. HUMIRA [Suspect]
     Active Substance: ADALIMUMAB
     Route: 058
     Dates: start: 201407

REACTIONS (7)
  - Fatigue [Not Recovered/Not Resolved]
  - Lymphadenopathy [Recovering/Resolving]
  - Viral infection [Recovering/Resolving]
  - Aphasia [Not Recovered/Not Resolved]
  - Oral disorder [Not Recovered/Not Resolved]
  - Progressive facial hemiatrophy [Not Recovered/Not Resolved]
  - Paralysis [Unknown]

NARRATIVE: CASE EVENT DATE: 2014
